FAERS Safety Report 7517679-8 (Version None)
Quarter: 2011Q2

REPORT INFORMATION
  Report Type: 
  Country: None (occurrence: None)
  Receive Date: 20110602
  Receipt Date: 20110526
  Transmission Date: 20111010
  Serious: Yes (Hospitalization)
  Sender: FDA-Public Use
  Company Number: US-BIOGENIDEC-2010BI044913

PATIENT
  Age: 66 Year
  Sex: Female

DRUGS (2)
  1. AVONEX [Suspect]
     Route: 030
     Dates: start: 19990915
  2. AVONEX [Suspect]
     Indication: MULTIPLE SCLEROSIS
     Route: 030
     Dates: start: 20061206

REACTIONS (4)
  - SMALL INTESTINAL OBSTRUCTION [None]
  - CYSTITIS BACTERIAL [None]
  - STREPTOCOCCAL SEPSIS [None]
  - BETA HAEMOLYTIC STREPTOCOCCAL INFECTION [None]
